FAERS Safety Report 4867220-3 (Version None)
Quarter: 2005Q4

REPORT INFORMATION
  Report Type: 
  Country: None (occurrence: None)
  Receive Date: 20051222
  Receipt Date: 20051215
  Transmission Date: 20060501
  Serious: Yes (Hospitalization)
  Sender: FDA-Public Use
  Company Number: 2005-DE-05491GD

PATIENT
  Age: 92 Year
  Sex: Male

DRUGS (9)
  1. SALBUTAMOL [Suspect]
     Indication: NASOPHARYNGITIS
     Dosage: IH
     Route: 055
  2. METOPROLOL SUCCINATE [Suspect]
  3. TAMSULOSIN (TAMSULOSIN) (TAMSULOSIN HYDROCHLORIDE) [Concomitant]
  4. ASPIRIN [Concomitant]
  5. FINASTERIDE [Concomitant]
  6. ESOMEPRAZOLE (ESOMEPRAZOLE) [Concomitant]
  7. FUROSEMIDE [Concomitant]
  8. GUAIFENSESIN (GUAIFENESIN) [Concomitant]
  9. BIMATOPROST (BIMATOPROST) [Concomitant]

REACTIONS (5)
  - BODY TEMPERATURE DECREASED [None]
  - BRONCHOSPASM PARADOXICAL [None]
  - DYSPHASIA [None]
  - SPEECH DISORDER [None]
  - STRIDOR [None]
